FAERS Safety Report 5109005-9 (Version None)
Quarter: 2006Q3

REPORT INFORMATION
  Report Type: 
  Country: None (occurrence: None)
  Receive Date: 20060918
  Receipt Date: 20060901
  Transmission Date: 20061208
  Serious: Yes (Hospitalization)
  Sender: FDA-Public Use
  Company Number: US200609000741

PATIENT
  Age: 80 Year
  Sex: Female

DRUGS (5)
  1. FORTEO [Suspect]
     Indication: OSTEOPOROSIS
     Dates: start: 20060201
  2. FORTEO PEN (FORTEO PEN) [Concomitant]
  3. CITRACAL (CALCIUM CITRATE) [Concomitant]
  4. FOLIC ACID [Concomitant]
  5. ASPIRIN [Concomitant]

REACTIONS (4)
  - BONE NEOPLASM MALIGNANT [None]
  - FALL [None]
  - PELVIC FRACTURE [None]
  - PHARMACEUTICAL PRODUCT COMPLAINT [None]
